FAERS Safety Report 7571772-2 (Version None)
Quarter: 2011Q2

REPORT INFORMATION
  Report Type: 
  Country: None (occurrence: None)
  Receive Date: 20110624
  Receipt Date: 20110617
  Transmission Date: 20111010
  Serious: Yes (Other)
  Sender: FDA-Public Use
  Company Number: SE-PFIZER INC-2008011575

PATIENT
  Age: 68 Year
  Sex: Male

DRUGS (13)
  1. NEURONTIN [Suspect]
     Indication: NEURALGIA
     Dosage: 200 + 200 + 300 MG DAILY
     Route: 048
     Dates: start: 20060101
  2. LEVOTHYROXINE SODIUM [Suspect]
     Dosage: UNK
  3. ASPIRIN [Concomitant]
     Dosage: 160 MG
  4. NEURONTIN [Suspect]
     Dosage: 500 (100 + 200+ 200) MG/DAILY
     Dates: end: 20080801
  5. KETOGAN [Suspect]
  6. LEVOTHYROXINE SODIUM [Concomitant]
     Dosage: 50 UG/DAILY
  7. NICORETTE [Concomitant]
  8. ATACAND [Concomitant]
     Indication: HYPERTENSION
     Dosage: 8 MG
  9. VARENICLINE TARTRATE [Suspect]
     Dates: start: 20071101, end: 20080101
  10. OXYCONTIN [Suspect]
  11. SYMBICORT [Concomitant]
  12. NOZINAN [Concomitant]
     Dosage: 10 MG FOR THE NIGHT
  13. ALVEDON [Concomitant]
     Dosage: 500 MG 6-8 TIMES/DAILY

REACTIONS (27)
  - ERECTILE DYSFUNCTION [None]
  - APATHY [None]
  - DRUG INEFFECTIVE [None]
  - MUSCLE RIGIDITY [None]
  - HYPOACUSIS [None]
  - DIZZINESS [None]
  - AMNESIA [None]
  - COORDINATION ABNORMAL [None]
  - MUSCLE TWITCHING [None]
  - TOXICITY TO VARIOUS AGENTS [None]
  - MASKED FACIES [None]
  - MUSCLE SPASMS [None]
  - IRRITABILITY [None]
  - ABASIA [None]
  - WEIGHT DECREASED [None]
  - ACTIVITIES OF DAILY LIVING IMPAIRED [None]
  - FATIGUE [None]
  - SWELLING [None]
  - GAIT DISTURBANCE [None]
  - DRUG ADMINISTRATION ERROR [None]
  - DECREASED APPETITE [None]
  - DYSPNOEA [None]
  - SPEECH DISORDER [None]
  - WEIGHT INCREASED [None]
  - DEPRESSION [None]
  - POOR PERSONAL HYGIENE [None]
  - CONFUSIONAL STATE [None]
